FAERS Safety Report 10241796 (Version 1)
Quarter: 2014Q1

REPORT INFORMATION
  Report Type: Spontaneous
  Country: US (occurrence: None)
  Receive Date: 20140306
  Receipt Date: 20140306
  Transmission Date: 20141002
  Serious: Yes (Hospitalization)
  Sender: FDA-Public Use
  Company Number: 163-21880-13103916

PATIENT
  Age: 64 Year
  Sex: Male

DRUGS (8)
  1. REVLIMID (LENALIDOMIDE) (10 MILLIGRAM, CAPSULES) [Suspect]
     Indication: PLASMA CELL MYELOMA
     Route: 048
     Dates: start: 200811
  2. OMEPRAZOLE (OMEPRAZOLE) (UNKNOWN) [Concomitant]
  3. GABAPENTIN (GABAPENTIN) (UNKNOWN) (GABAPENTIN) [Concomitant]
  4. FOLIC ACID (FOLIC ACID) (UNKNOWN) [Concomitant]
  5. ACYCLOVIR (ACICLOVIR) (UNKNOWN) [Concomitant]
  6. DOXYCYCLINE (DOXYCYCLINE) (UNKNOWN) [Concomitant]
  7. PROMETHAZINE (PROMETHAZINE) (UNKNOWN) [Concomitant]
  8. MULTIVITAMINS (MULTIVITAMINS) (UNKNOWN) [Concomitant]

REACTIONS (1)
  - Myocardial infarction [None]
